FAERS Safety Report 11837418 (Version 2)
Quarter: 2016Q1

REPORT INFORMATION
  Report Type: Spontaneous
  Country: US (occurrence: US)
  Receive Date: 20151215
  Receipt Date: 20160119
  Transmission Date: 20160525
  Serious: Yes (Hospitalization)
  Sender: FDA-Public Use
  Company Number: US-BAYER-2015-487598

PATIENT
  Age: 28 Year
  Sex: Female

DRUGS (1)
  1. MIRENA [Suspect]
     Active Substance: LEVONORGESTREL
     Indication: CONTRACEPTION
     Dosage: 20 MCG/24HR, CONT
     Route: 015
     Dates: start: 20110823, end: 20130315

REACTIONS (5)
  - Vaginal haemorrhage [None]
  - Pain [None]
  - Device issue [None]
  - Device difficult to use [None]
  - Uterine perforation [None]

NARRATIVE: CASE EVENT DATE: 201303
